FAERS Safety Report 12285968 (Version 10)
Quarter: 2017Q2

REPORT INFORMATION
  Report Type: Report from Study
  Country: CA (occurrence: CA)
  Receive Date: 20160420
  Receipt Date: 20170411
  Transmission Date: 20170830
  Serious: Yes (Hospitalization, Other)
  Sender: FDA-Public Use
  Company Number: PHHY2016CA051073

PATIENT
  Age: 62 Year
  Sex: Female

DRUGS (7)
  1. AFINITOR [Suspect]
     Active Substance: EVEROLIMUS
     Dosage: 10 MG, QOD
     Route: 048
     Dates: start: 201507, end: 20160729
  2. AFINITOR [Suspect]
     Active Substance: EVEROLIMUS
     Dosage: 10 MG AFINITOR FOR 2 DAYS AND THEN SKIPPING ONE DAY
     Route: 048
     Dates: start: 2016
  3. AFINITOR [Suspect]
     Active Substance: EVEROLIMUS
     Dosage: 7.5 MG, QD
     Route: 048
     Dates: start: 20160914, end: 20161113
  4. AFINITOR [Suspect]
     Active Substance: EVEROLIMUS
     Dosage: 5 MG, QD
     Route: 048
     Dates: start: 2016, end: 2016
  5. AFINITOR [Suspect]
     Active Substance: EVEROLIMUS
     Dosage: 5 MG, QD
     Route: 048
     Dates: start: 20160730, end: 20160913
  6. AFINITOR [Suspect]
     Active Substance: EVEROLIMUS
     Dosage: 7.5 MG, QD
     Route: 048
     Dates: start: 2016, end: 201611
  7. AFINITOR [Suspect]
     Active Substance: EVEROLIMUS
     Indication: PANCREATIC NEUROENDOCRINE TUMOUR
     Dosage: 10 MG, QD
     Route: 048
     Dates: start: 20150701, end: 201507

REACTIONS (11)
  - Pulmonary mass [Recovering/Resolving]
  - Stomatitis [Recovered/Resolved]
  - Lung disorder [Unknown]
  - Fatigue [Unknown]
  - Abdominal hernia [Unknown]
  - Abdominal mass [Unknown]
  - Stomatitis [Unknown]
  - Respiratory disorder [Unknown]
  - Pulmonary thrombosis [Unknown]
  - Viral infection [Unknown]
  - Product use issue [Unknown]

NARRATIVE: CASE EVENT DATE: 201507
